FAERS Safety Report 5234630-4 (Version None)
Quarter: 2007Q1

REPORT INFORMATION
  Report Type: 
  Country: None (occurrence: None)
  Receive Date: 20070209
  Receipt Date: 20070129
  Transmission Date: 20070707
  Serious: Yes (Other)
  Sender: FDA-Public Use
  Company Number: JP-PFIZER INC-2006133625

PATIENT
  Sex: Male

DRUGS (7)
  1. DIFLUCAN [Suspect]
     Dosage: DAILY DOSE:400MG
     Route: 048
     Dates: start: 20040322, end: 20040602
  2. DIFLUCAN [Suspect]
     Dosage: DAILY DOSE:400MG
     Route: 042
     Dates: start: 20040531, end: 20040609
  3. LEVOFLOXACIN [Suspect]
     Route: 048
     Dates: start: 20040322, end: 20040609
  4. BAKTAR [Suspect]
     Dosage: TEXT:4 DF
     Route: 048
     Dates: start: 20040511, end: 20040531
  5. VANCOMYCIN HCL [Suspect]
     Route: 048
     Dates: start: 20040511, end: 20040704
  6. TIENAM [Suspect]
     Route: 042
     Dates: start: 20040610, end: 20040615
  7. MODACIN [Concomitant]
     Route: 042
     Dates: start: 20040430, end: 20040503

REACTIONS (3)
  - BLOOD URINE PRESENT [None]
  - DIARRHOEA [None]
  - PYREXIA [None]
